FAERS Safety Report 6510179-3 (Version None)
Quarter: 2009Q4

REPORT INFORMATION
  Report Type: 
  Country: None (occurrence: None)
  Receive Date: 20091222
  Receipt Date: 20091216
  Transmission Date: 20100525
  Serious: Yes (Other)
  Sender: FDA-Public Use
  Company Number: GXKR2009BR13526

PATIENT
  Age: 18 Year
  Sex: Male

DRUGS (6)
  1. FUROSEMIDE (NGX) [Suspect]
     Dosage: 40 MG, QW2
     Route: 048
  2. NANDROLONE DECANOATE [Suspect]
     Dosage: 5 MG, QW3
     Route: 048
  3. STANOZOLOL [Suspect]
     Dosage: 5 MG, QW3
     Route: 048
  4. AMINO ACIDS [Concomitant]
  5. PROTEIN SUPPLEMENTS [Concomitant]
  6. DISTILLED WATER [Concomitant]

REACTIONS (3)
  - DRUG ABUSE [None]
  - RETINAL HAEMORRHAGE [None]
  - RETINAL VEIN OCCLUSION [None]
